FAERS Safety Report 5968890-9 (Version None)
Quarter: 2008Q4

REPORT INFORMATION
  Report Type: 
  Country: None (occurrence: None)
  Receive Date: 20081126
  Receipt Date: 20081119
  Transmission Date: 20090506
  Serious: Yes (Hospitalization)
  Sender: FDA-Public Use
  Company Number: JP-BRISTOL-MYERS SQUIBB COMPANY-14419923

PATIENT
  Age: 18 Year
  Sex: Male

DRUGS (3)
  1. ABILIFY [Suspect]
     Route: 048
     Dates: end: 20081118
  2. ZOLOFT [Suspect]
     Route: 048
     Dates: end: 20081118
  3. DEPAS [Concomitant]

REACTIONS (1)
  - EOSINOPHILIC PNEUMONIA [None]
